FAERS Safety Report 5881417-5 (Version None)
Quarter: 2008Q3

REPORT INFORMATION
  Report Type: 
  Country: None (occurrence: None)
  Receive Date: 20080912
  Receipt Date: 20080701
  Transmission Date: 20090109
  Serious: No
  Sender: FDA-Public Use
  Company Number: US-ABBOTT-08P-163-0460282-00

PATIENT
  Sex: Male
  Weight: 59.02 kg

DRUGS (3)
  1. HUMIRA [Suspect]
     Indication: CROHN'S DISEASE
     Route: 058
     Dates: start: 20070901
  2. AZATHIOPRINE [Concomitant]
     Indication: CROHN'S DISEASE
  3. TRIAMCINOLONE ACETONIDE [Concomitant]
     Indication: CROHN'S DISEASE

REACTIONS (1)
  - BREATH ALCOHOL TEST [None]
